FAERS Safety Report 16278061 (Version 2)
Quarter: 2020Q4

REPORT INFORMATION
  Report Type: Spontaneous
  Country: US (occurrence: US)
  Receive Date: 20190506
  Receipt Date: 20201224
  Transmission Date: 20210113
  Serious: Yes (Hospitalization, Other)
  Sender: FDA-Public Use
  Company Number: US-ASTRAZENECA-2018SF26709

PATIENT
  Age: 23209 Day
  Sex: Female
  Weight: 94.3 kg

DRUGS (62)
  1. VALSARTAN. [Concomitant]
     Active Substance: VALSARTAN
     Indication: MYOCARDIAL INFARCTION
     Dates: start: 2009, end: 2015
  2. ZONEGRAN [Concomitant]
     Active Substance: ZONISAMIDE
  3. CLOTRIMAZOLE. [Concomitant]
     Active Substance: CLOTRIMAZOLE
  4. DULOXETINE HCL [Concomitant]
     Active Substance: DULOXETINE HYDROCHLORIDE
  5. PRILOSEC OTC [Suspect]
     Active Substance: OMEPRAZOLE MAGNESIUM
     Indication: GASTROOESOPHAGEAL REFLUX DISEASE
     Route: 048
     Dates: start: 20031201, end: 20070201
  6. CIPROFLOXACIN. [Concomitant]
     Active Substance: CIPROFLOXACIN
     Indication: SKIN INFECTION
     Dates: start: 2009, end: 2015
  7. RITALIN [Concomitant]
     Active Substance: METHYLPHENIDATE HYDROCHLORIDE
  8. PRAMIPEXOLE. [Concomitant]
     Active Substance: PRAMIPEXOLE
  9. IBUPROFEN. [Concomitant]
     Active Substance: IBUPROFEN
  10. XYLOCAINE [Concomitant]
     Active Substance: LIDOCAINE HYDROCHLORIDE
  11. TIZANIDINE HCL [Concomitant]
     Active Substance: TIZANIDINE HYDROCHLORIDE
  12. CETIRIZINE [Concomitant]
     Active Substance: CETIRIZINE HYDROCHLORIDE
  13. PRILOSEC [Suspect]
     Active Substance: OMEPRAZOLE MAGNESIUM
     Indication: GASTROOESOPHAGEAL REFLUX DISEASE
     Dosage: GENERIC
     Route: 065
     Dates: start: 20070117
  14. AMLODIPINE [Concomitant]
     Active Substance: AMLODIPINE BESYLATE
     Indication: CHEST PAIN
     Dates: start: 2009, end: 2015
  15. ATORVASTATIN [Concomitant]
     Active Substance: ATORVASTATIN
     Indication: BLOOD CHOLESTEROL INCREASED
     Dates: start: 2009, end: 2015
  16. VALSARTAN. [Concomitant]
     Active Substance: VALSARTAN
     Indication: RENAL DISORDER
     Dates: start: 2009, end: 2015
  17. LEXAPRO [Concomitant]
     Active Substance: ESCITALOPRAM OXALATE
     Indication: ANXIETY
     Dates: start: 2009, end: 2015
  18. MIDRIN [Concomitant]
     Active Substance: ACETAMINOPHEN\DICHLORALPHENAZONE\ISOMETHEPTENE
  19. LOTRISONE [Concomitant]
     Active Substance: BETAMETHASONE DIPROPIONATE\CLOTRIMAZOLE
  20. MULTIVITAMINS [Concomitant]
     Active Substance: VITAMINS
  21. VOLTAREN [Concomitant]
     Active Substance: DICLOFENAC SODIUM
  22. PRILOSEC [Suspect]
     Active Substance: OMEPRAZOLE MAGNESIUM
     Indication: GASTROOESOPHAGEAL REFLUX DISEASE
     Route: 048
     Dates: start: 19991122, end: 20060118
  23. METRONIDAZOLE. [Concomitant]
     Active Substance: METRONIDAZOLE
     Indication: ANTIBIOTIC THERAPY
  24. FLUCONAZOLE. [Concomitant]
     Active Substance: FLUCONAZOLE
     Indication: ANTIBIOTIC THERAPY
  25. PREMARIN [Concomitant]
     Active Substance: ESTROGENS, CONJUGATED
  26. MIDAZOLAM. [Concomitant]
     Active Substance: MIDAZOLAM
  27. FLUZONE [Concomitant]
     Active Substance: INFLUENZA A VIRUS A/CALIFORNIA/7/2009 X-179A (H1N1) ANTIGEN (FORMALDEHYDE INACTIVATED)\INFLUENZA A VIRUS A/VICTORIA/210/2009 X-187 (H3N2) ANTIGEN (FORMALDEHYDE INACTIVATED)\INFLUENZA B VIRUS B/BRISBANE/60/2008 ANTIGEN (FORMALDEHYDE INACTIVATED)
  28. PRILOSEC [Suspect]
     Active Substance: OMEPRAZOLE MAGNESIUM
     Indication: GASTROOESOPHAGEAL REFLUX DISEASE
     Route: 048
     Dates: start: 199801, end: 200712
  29. AMLODIPINE [Concomitant]
     Active Substance: AMLODIPINE BESYLATE
     Indication: GASTROOESOPHAGEAL REFLUX DISEASE
     Dates: start: 2009, end: 2015
  30. TEMOVATE [Concomitant]
     Active Substance: CLOBETASOL PROPIONATE
  31. VYTONE [Concomitant]
     Active Substance: HYDROCORTISONE ACETATE\IODOQUINOL
  32. CALCIUM CITRATE [Concomitant]
     Active Substance: CALCIUM CITRATE
  33. NORTRIPTYLINE [Concomitant]
     Active Substance: NORTRIPTYLINE
  34. FERREX [Concomitant]
     Active Substance: FERRIC POLYSACCHARIDE COMPLEX
  35. ZOSTAVAX [Concomitant]
     Active Substance: VARICELLA-ZOSTER VIRUS STRAIN OKA/MERCK LIVE ANTIGEN
  36. CIPROFLOXACIN. [Concomitant]
     Active Substance: CIPROFLOXACIN
     Indication: BACTERIAL INFECTION
     Dates: start: 2009, end: 2015
  37. CIPROFLOXACIN. [Concomitant]
     Active Substance: CIPROFLOXACIN
     Indication: URINARY TRACT INFECTION
     Dates: start: 2009, end: 2015
  38. TYLENOL [Concomitant]
     Active Substance: ACETAMINOPHEN
     Indication: PAIN
     Dosage: AS NEEDED
     Dates: start: 2014
  39. TRAZODONE [Concomitant]
     Active Substance: TRAZODONE HYDROCHLORIDE
  40. KLONOPIN [Concomitant]
     Active Substance: CLONAZEPAM
  41. LAMISIL [Concomitant]
     Active Substance: TERBINAFINE HYDROCHLORIDE
  42. PSYLLIUM [Concomitant]
     Active Substance: PLANTAGO SEED
  43. FOLIC ACID. [Concomitant]
     Active Substance: FOLIC ACID
  44. PEG [Concomitant]
     Active Substance: POLYETHYLENE GLYCOLS
  45. GABAPENTIN. [Concomitant]
     Active Substance: GABAPENTIN
     Indication: NEURALGIA
     Dates: start: 2009, end: 2015
  46. CIPROFLOXACIN. [Concomitant]
     Active Substance: CIPROFLOXACIN
     Indication: TYPHOID FEVER
     Dates: start: 2009, end: 2015
  47. FISH OIL [Concomitant]
     Active Substance: FISH OIL
     Indication: HYPERTENSION
     Dates: start: 2009
  48. FISH OIL [Concomitant]
     Active Substance: FISH OIL
     Indication: CEREBROVASCULAR ACCIDENT
     Dates: start: 2009
  49. VAGIFEM [Concomitant]
     Active Substance: ESTRADIOL
  50. PROVERA [Concomitant]
     Active Substance: MEDROXYPROGESTERONE ACETATE
  51. TAMIFLU [Concomitant]
     Active Substance: OSELTAMIVIR PHOSPHATE
  52. METHOCARBAMOL. [Concomitant]
     Active Substance: METHOCARBAMOL
  53. DOCUSATE SODIUM. [Concomitant]
     Active Substance: DOCUSATE SODIUM
  54. VALSARTAN. [Concomitant]
     Active Substance: VALSARTAN
     Indication: BLOOD PRESSURE ABNORMAL
     Dates: start: 2009, end: 2015
  55. VALSARTAN. [Concomitant]
     Active Substance: VALSARTAN
     Indication: CEREBROVASCULAR ACCIDENT
     Dates: start: 2009, end: 2015
  56. VITAMIN D [Concomitant]
     Active Substance: VITAMIN D NOS
     Dates: start: 2009
  57. CENTRUM SILVER [Concomitant]
     Active Substance: MINERALS\VITAMINS
     Dates: start: 2014
  58. HYDROCHLOROTHIAZIDE. [Concomitant]
     Active Substance: HYDROCHLOROTHIAZIDE
  59. MIRAPEX [Concomitant]
     Active Substance: PRAMIPEXOLE DIHYDROCHLORIDE
  60. PROBIOTIC [Concomitant]
     Active Substance: PROBIOTICS NOS
  61. CHOLECALCIFEROL [Concomitant]
     Active Substance: CHOLECALCIFEROL
  62. PROAIR HFA [Concomitant]
     Active Substance: ALBUTEROL SULFATE

REACTIONS (5)
  - Acute kidney injury [Not Recovered/Not Resolved]
  - Nephrogenic anaemia [Unknown]
  - Gastrooesophageal reflux disease [Not Recovered/Not Resolved]
  - Renal failure [Unknown]
  - Chronic kidney disease [Not Recovered/Not Resolved]

NARRATIVE: CASE EVENT DATE: 20080902
